FAERS Safety Report 5918809-1 (Version None)
Quarter: 2008Q4

REPORT INFORMATION
  Report Type: 
  Country: None (occurrence: None)
  Receive Date: 20081010
  Receipt Date: 20080929
  Transmission Date: 20090506
  Serious: Yes (Death)
  Sender: FDA-Public Use
  Company Number: 1000001034

PATIENT
  Age: 52 Year
  Sex: Male
  Weight: 102 kg

DRUGS (2)
  1. CITALOPRAM HYDROBROMIDE [Suspect]
     Indication: DEPRESSION
     Dosage: 10 MG (10 MG, 1 IN 1 D), ORAL
     Route: 048
     Dates: start: 20080609
  2. METFORMIN HYDROCHLORIDE [Suspect]
     Indication: DIABETES MELLITUS
     Dosage: 2GM (GM, 1 IN 1 D), ORAL
     Route: 048
     Dates: start: 20080407

REACTIONS (4)
  - ASPHYXIA [None]
  - COMPLETED SUICIDE [None]
  - DEPRESSION [None]
  - INTENTIONAL SELF-INJURY [None]
